FAERS Safety Report 9088479 (Version 1)
Quarter: 2013Q1

REPORT INFORMATION
  Report Type: Report from Study
  Country: US (occurrence: US)
  Receive Date: 20130218
  Receipt Date: 20130218
  Transmission Date: 20140127
  Serious: No
  Sender: FDA-Public Use
  Company Number: US-ABBOTT-12P-163-0916836-00

PATIENT
  Sex: Male

DRUGS (5)
  1. SIMCOR [Suspect]
     Indication: LOW DENSITY LIPOPROTEIN INCREASED
     Dates: start: 201109
  2. SIMCOR [Suspect]
     Indication: BLOOD TRIGLYCERIDES INCREASED
  3. SIMCOR [Suspect]
     Indication: HIGH DENSITY LIPOPROTEIN DECREASED
  4. ASPIRIN [Concomitant]
     Indication: PRODUCT USED FOR UNKNOWN INDICATION
     Dosage: WITH DOSE OF SIMCOR
     Route: 048
  5. PRADAXA [Concomitant]
     Indication: PRODUCT USED FOR UNKNOWN INDICATION
     Route: 048

REACTIONS (1)
  - Pruritus [Recovered/Resolved]
